FAERS Safety Report 6530599-0 (Version None)
Quarter: 2010Q1

REPORT INFORMATION
  Report Type: 
  Country: None (occurrence: None)
  Receive Date: 20100108
  Receipt Date: 20091228
  Transmission Date: 20100710
  Serious: Yes (Hospitalization)
  Sender: FDA-Public Use
  Company Number: US-BIOGENIDEC-2009BI035965

PATIENT
  Age: 45 Year
  Sex: Female

DRUGS (1)
  1. TYSABRI [Suspect]
     Indication: MULTIPLE SCLEROSIS
     Route: 042
     Dates: start: 20071113

REACTIONS (15)
  - AMNESIA [None]
  - ANAEMIA [None]
  - DEHYDRATION [None]
  - DIZZINESS [None]
  - DRUG ERUPTION [None]
  - FATIGUE [None]
  - GAIT DISTURBANCE [None]
  - HEPATIC ENZYME INCREASED [None]
  - HYPOTENSION [None]
  - PANCREATIC ENZYMES INCREASED [None]
  - PYURIA [None]
  - RENAL FAILURE ACUTE [None]
  - RENAL TUBULAR NECROSIS [None]
  - THROMBOSIS [None]
  - VIRAL DIARRHOEA [None]
